FAERS Safety Report 15105577 (Version 1)
Quarter: 2018Q3

REPORT INFORMATION
  Report Type: Spontaneous
  Country: FR (occurrence: FR)
  Receive Date: 20180704
  Receipt Date: 20180704
  Transmission Date: 20181010
  Serious: Yes (Other)
  Sender: FDA-Public Use
  Company Number: FR-SA-2016SA212698

PATIENT
  Age: 24 Year
  Sex: Female

DRUGS (7)
  1. FLUOXETINE [Concomitant]
     Active Substance: FLUOXETINE HYDROCHLORIDE
     Indication: ANTIDEPRESSANT THERAPY
     Dosage: UNK UNK, UNK
  2. ARIPIPRAZOLE. [Concomitant]
     Active Substance: ARIPIPRAZOLE
     Dosage: UNK UNK, UNK
  3. CYAMEMAZINE [Concomitant]
     Active Substance: CYAMEMAZINE
     Dosage: UNK UNK, UNK
  4. PREGABALIN. [Suspect]
     Active Substance: PREGABALIN
     Indication: GENERALISED ANXIETY DISORDER
     Dosage: 100 MG,TID
     Route: 048
     Dates: start: 2012
  5. OXAZEPAM. [Concomitant]
     Active Substance: OXAZEPAM
     Dosage: UNK UNK, UNK
  6. NICOTINE. [Suspect]
     Active Substance: NICOTINE
     Indication: ANXIETY
     Dosage: UNK, UNK
     Route: 005
  7. MIRTAZAPINE. [Concomitant]
     Active Substance: MIRTAZAPINE
     Indication: ANTIDEPRESSANT THERAPY
     Dosage: UNK UNK, UNK

REACTIONS (22)
  - Hyperhidrosis [Recovered/Resolved]
  - Substance use [Unknown]
  - Nicotine dependence [Unknown]
  - Withdrawal syndrome [Recovered/Resolved]
  - Euphoric mood [Recovered/Resolved]
  - Drug dependence [Unknown]
  - Tobacco abuse [Unknown]
  - Impaired quality of life [Recovering/Resolving]
  - Dependence [Unknown]
  - Drug abuse [Unknown]
  - Tremor [Recovered/Resolved]
  - Insomnia [Recovered/Resolved]
  - Asthenia [Recovered/Resolved]
  - Anxiety [Unknown]
  - Drug interaction [Unknown]
  - Suicidal ideation [Recovered/Resolved]
  - Intentional product misuse [Unknown]
  - Thinking abnormal [Recovered/Resolved]
  - Prescription drug used without a prescription [Unknown]
  - Mental disorder [Unknown]
  - Drug use disorder [Unknown]
  - Drug tolerance [Unknown]
